FAERS Safety Report 12014342 (Version 1)
Quarter: 2016Q1

REPORT INFORMATION
  Report Type: Spontaneous
  Country: US (occurrence: US)
  Receive Date: 20160205
  Receipt Date: 20160205
  Transmission Date: 20160526
  Serious: Yes (Other)
  Sender: FDA-Public Use
  Company Number: US-ELI_LILLY_AND_COMPANY-US201601010341

PATIENT
  Sex: Female

DRUGS (3)
  1. HUMALOG [Suspect]
     Active Substance: INSULIN LISPRO
     Dosage: UNK UNK, PRN
     Route: 065
     Dates: start: 201509
  2. LANTUS [Concomitant]
     Active Substance: INSULIN GLARGINE
     Dosage: 30 IU, EACH EVENING
     Route: 065
  3. HUMALOG [Suspect]
     Active Substance: INSULIN LISPRO
     Indication: TYPE 2 DIABETES MELLITUS
     Dosage: UNK UNK, PRN
     Route: 065
     Dates: start: 201509

REACTIONS (10)
  - Spinal fracture [Unknown]
  - Hip fracture [Unknown]
  - Visual impairment [Unknown]
  - Blood glucose increased [Unknown]
  - Pyrexia [Unknown]
  - Immune system disorder [Unknown]
  - Depressed mood [Unknown]
  - Anaemia [Unknown]
  - Underdose [Unknown]
  - Malaise [Unknown]
